FAERS Safety Report 23732037 (Version 1)
Quarter: 2024Q2

REPORT INFORMATION
  Report Type: Spontaneous
  Country: US (occurrence: None)
  Receive Date: 20240411
  Receipt Date: 20240411
  Transmission Date: 20240716
  Serious: Yes (Hospitalization)
  Sender: FDA-Public Use
  Company Number: None

PATIENT
  Sex: Female

DRUGS (11)
  1. ACTEMRA [Suspect]
     Active Substance: TOCILIZUMAB
     Indication: Rheumatoid arthritis
     Dosage: OTHER QUANTITY : 1 SYRINGE;?OTHER FREQUENCY : EVERY 14 DAYS;?
     Route: 058
     Dates: start: 20220902
  2. ALBUTROL SULFATE [Concomitant]
  3. ALPHA LIPOIC [Concomitant]
  4. ALPRAZOLAM [Concomitant]
  5. BUTALITAL/ACETAMINOPHEN [Concomitant]
  6. CITALOPRAM [Concomitant]
     Active Substance: CITALOPRAM\CITALOPRAM HYDROBROMIDE
  7. CITRACAL+D3 [Concomitant]
  8. EMGALITY [Concomitant]
     Active Substance: GALCANEZUMAB-GNLM
  9. FOLIC ACID [Concomitant]
     Active Substance: FOLIC ACID
  10. HYDROXYCHLOR [Concomitant]
  11. LIDOCAINE [Concomitant]

REACTIONS (9)
  - Pneumonia [None]
  - Sepsis [None]
  - Pain [None]
  - Loss of personal independence in daily activities [None]
  - Depression [None]
  - Nasal ulcer [None]
  - Mouth ulceration [None]
  - Nail disorder [None]
  - Nail bed disorder [None]
